FAERS Safety Report 17202764 (Version 2)
Quarter: 2020Q3

REPORT INFORMATION
  Report Type: Spontaneous
  Country: US (occurrence: US)
  Receive Date: 20191226
  Receipt Date: 20200720
  Transmission Date: 20201102
  Serious: Yes (Other)
  Sender: FDA-Public Use
  Company Number: US-PFIZER INC-2019553977

PATIENT
  Age: 69 Year
  Sex: Female

DRUGS (2)
  1. LYRICA [Suspect]
     Active Substance: PREGABALIN
     Indication: NEUROPATHY PERIPHERAL
  2. LYRICA [Suspect]
     Active Substance: PREGABALIN
     Indication: PAIN
     Dosage: 300 MG, 2X/DAY
     Route: 048

REACTIONS (7)
  - Product packaging issue [Unknown]
  - Osteoarthritis [Unknown]
  - Pain in extremity [Unknown]
  - Burning sensation [Unknown]
  - Diabetes mellitus [Unknown]
  - Neuropathic arthropathy [Unknown]
  - Frustration tolerance decreased [Unknown]
